FAERS Safety Report 11025620 (Version 1)
Quarter: 2015Q2

REPORT INFORMATION
  Report Type: Spontaneous
  Country: US (occurrence: US)
  Receive Date: 20150414
  Receipt Date: 20150414
  Transmission Date: 20150821
  Serious: Yes (Death, Hospitalization, Congenital Anomaly, Other)
  Sender: FDA-Public Use
  Company Number: US-GLAXOSMITHKLINE INC.-US2015GSK049867

PATIENT
  Sex: Male

DRUGS (1)
  1. ZOFRAN [Suspect]
     Active Substance: ONDANSETRON HYDROCHLORIDE
     Indication: PRODUCT USED FOR UNKNOWN INDICATION
     Dosage: UNK
     Route: 064
     Dates: start: 20140321, end: 20141115

REACTIONS (5)
  - Hydrocele [Fatal]
  - Patent ductus arteriosus [Fatal]
  - Foetal exposure during pregnancy [Unknown]
  - Heart disease congenital [Fatal]
  - Hypoplastic left heart syndrome [Fatal]
